FAERS Safety Report 16707060 (Version 1)
Quarter: 2019Q3

REPORT INFORMATION
  Report Type: Spontaneous
  Country: US (occurrence: US)
  Receive Date: 20190815
  Receipt Date: 20190815
  Transmission Date: 20191004
  Serious: No
  Sender: FDA-Public Use
  Company Number: US-THERAPEUTICSMD-2019TMD01178

PATIENT
  Age: 75 Year
  Sex: Female
  Weight: 61.22 kg

DRUGS (4)
  1. BUPROPION. [Concomitant]
     Active Substance: BUPROPION
  2. BIJUVA [Suspect]
     Active Substance: ESTRADIOL\PROGESTERONE
     Indication: HORMONE REPLACEMENT THERAPY
     Dosage: 1 CAPSULES, 1X/DAY IN EVENING
     Route: 048
     Dates: start: 20190425, end: 20190520
  3. UNSPECIFIED VITAMINS [Concomitant]
     Active Substance: VITAMINS
     Dosage: UNK UNK, 1X/DAY IN THE MORNING
  4. UNSPECIFIED ANTI-ANXIETY MEDICATION [Concomitant]

REACTIONS (7)
  - Anger [Recovered/Resolved]
  - Emotional poverty [Recovered/Resolved]
  - Breast tenderness [Recovered/Resolved]
  - Depressed mood [Recovered/Resolved]
  - Crying [Recovered/Resolved]
  - Flat affect [Recovered/Resolved]
  - Off label use [Recovered/Resolved]

NARRATIVE: CASE EVENT DATE: 2019
